FAERS Safety Report 24937000 (Version 2)
Quarter: 2025Q2

REPORT INFORMATION
  Report Type: Spontaneous
  Country: IT (occurrence: IT)
  Receive Date: 20250206
  Receipt Date: 20250515
  Transmission Date: 20250717
  Serious: Yes (Other)
  Sender: CATALYST PHARMA
  Company Number: IT-CATALYSTPHARMACEUTICALPARTNERS-IT-CATA-25-00154

PATIENT
  Age: 66 Year
  Sex: Female

DRUGS (4)
  1. FYCOMPA [Suspect]
     Active Substance: PERAMPANEL
     Indication: Generalised tonic-clonic seizure
     Dosage: 6.0 MILLIGRAM(S) (6 MILLIGRAM(S), 1 IN 1 DAY)
     Route: 048
     Dates: start: 20240617, end: 20240831
  2. FYCOMPA [Suspect]
     Active Substance: PERAMPANEL
     Dosage: 4.0 MILLIGRAM(S) (4 MILLIGRAM(S), 1 IN 1 DAY)
     Route: 048
  3. TEGRETOL [Concomitant]
     Active Substance: CARBAMAZEPINE
     Indication: Generalised tonic-clonic seizure
     Dosage: 800.0 MILLIGRAM(S) (800 MILLIGRAM(S), 1 IN 1 DAY)
     Route: 065
  4. LEVETIRACETAM [Concomitant]
     Active Substance: LEVETIRACETAM
     Indication: Generalised tonic-clonic seizure
     Dosage: 3000 MILLIGRAM(S) (3000 MILLIGRAM(S), 1 IN 1 DAY)
     Route: 065

REACTIONS (2)
  - Epilepsy [Recovered/Resolved]
  - Loss of therapeutic response [Unknown]

NARRATIVE: CASE EVENT DATE: 20240801
